FAERS Safety Report 6931582-3 (Version None)
Quarter: 2010Q3

REPORT INFORMATION
  Report Type: 
  Country: None (occurrence: None)
  Receive Date: 20100816
  Receipt Date: 20100802
  Transmission Date: 20110219
  Serious: Yes (Other)
  Sender: FDA-Public Use
  Company Number: AVE_01929_2010

PATIENT
  Sex: Female

DRUGS (9)
  1. CLONIDINE [Suspect]
     Indication: HYPERTENSION
     Dosage: 0.3 MG, QD, VIA 1/WEEKLY PATCH; TRANSDERMAL
     Route: 062
     Dates: start: 20100701, end: 20100701
  2. TOPROL-XL [Concomitant]
  3. NORVASC [Concomitant]
  4. MINOXIDIL [Concomitant]
  5. JANUVIA [Concomitant]
  6. PRAVASTATIN [Concomitant]
  7. LISINOPRIL [Concomitant]
  8. NADOLOL [Concomitant]
  9. CATAPRES [Concomitant]

REACTIONS (6)
  - DRY MOUTH [None]
  - DYSARTHRIA [None]
  - PYREXIA [None]
  - SWELLING FACE [None]
  - SWOLLEN TONGUE [None]
  - TONGUE DISORDER [None]
